FAERS Safety Report 8541485-9 (Version None)
Quarter: 2012Q3

REPORT INFORMATION
  Report Type: 
  Country: None (occurrence: None)
  Receive Date: 20120726
  Receipt Date: 20120629
  Transmission Date: 20120928
  Serious: No
  Sender: FDA-Public Use
  Company Number: US-009507513-1207USA006691

PATIENT

DRUGS (1)
  1. CLARITIN [Suspect]
     Indication: PRODUCT USED FOR UNKNOWN INDICATION
     Dosage: 10 MG, UNKNOWN
     Route: 048
     Dates: start: 20120627

REACTIONS (5)
  - LIP SWELLING [None]
  - RASH [None]
  - SWELLING FACE [None]
  - HYPERSENSITIVITY [None]
  - HYPERHIDROSIS [None]
